FAERS Safety Report 13049169 (Version 2)
Quarter: 2016Q4

REPORT INFORMATION
  Report Type: Spontaneous
  Country: US (occurrence: US)
  Receive Date: 20161221
  Receipt Date: 20161228
  Transmission Date: 20170207
  Serious: Yes (Disabling, Other)
  Sender: FDA-Public Use
  Company Number: US-JNJFOC-20161214673

PATIENT
  Age: 84 Year
  Sex: Female

DRUGS (5)
  1. TRAMADOL. [Suspect]
     Active Substance: TRAMADOL
     Indication: SPINAL PAIN
     Route: 065
  2. TYLENOL [Suspect]
     Active Substance: ACETAMINOPHEN
     Indication: PAIN
     Dosage: 325 MG, 650 MG PER DOSE FOR 30 YEARS
     Route: 048
  3. TYLENOL [Suspect]
     Active Substance: ACETAMINOPHEN
     Route: 048
  4. ACETAMINOPHEN AND CODEINE [Suspect]
     Active Substance: ACETAMINOPHEN\CODEINE PHOSPHATE
     Indication: SPINAL PAIN
     Dosage: 325 MG, 650 MG PER DOSE FOR 30 YEARS
     Route: 065
  5. MORPHINE [Suspect]
     Active Substance: MORPHINE
     Indication: SPINAL PAIN
     Dosage: 325 MG, 650 MG PER DOSE FOR 30 YEARS
     Route: 050

REACTIONS (8)
  - Spinal pain [Not Recovered/Not Resolved]
  - Abasia [Not Recovered/Not Resolved]
  - Peripheral swelling [Not Recovered/Not Resolved]
  - Spinal fracture [Not Recovered/Not Resolved]
  - Arthralgia [Not Recovered/Not Resolved]
  - Vaginal haemorrhage [Unknown]
  - Urethral haemorrhage [Unknown]
  - Drug ineffective [Unknown]
